FAERS Safety Report 17234031 (Version 1)
Quarter: 2020Q1

REPORT INFORMATION
  Report Type: Spontaneous
  Country: US (occurrence: US)
  Receive Date: 20200106
  Receipt Date: 20200106
  Transmission Date: 20200409
  Serious: No
  Sender: FDA-Public Use
  Company Number: US-UCBSA-2014006818

PATIENT

DRUGS (4)
  1. METHOTREXATE. [Concomitant]
     Active Substance: METHOTREXATE
     Dosage: UNK
  2. HUMIRA [Concomitant]
     Active Substance: ADALIMUMAB
     Dosage: UNK, FOR ABOUT 4 YEARS
  3. CIMZIA [Suspect]
     Active Substance: CERTOLIZUMAB PEGOL
     Dosage: UNK, EV 2 WEEKS(QOW), HAD 6 SHOTS (2 EACH WEEK AT WEEK 0,2,4)
  4. REMICADE [Concomitant]
     Active Substance: INFLIXIMAB
     Dosage: UNK, FOR ABOUT A YEAR

REACTIONS (3)
  - Skin disorder [Unknown]
  - Genital swelling [Unknown]
  - Drug ineffective [Unknown]
